FAERS Safety Report 23531623 (Version 3)
Quarter: 2024Q3

REPORT INFORMATION
  Report Type: Spontaneous
  Country: GB (occurrence: GB)
  Receive Date: 20240216
  Receipt Date: 20240904
  Transmission Date: 20241017
  Serious: Yes (Hospitalization, Other)
  Sender: STRIDES
  Company Number: None

PATIENT

DRUGS (1)
  1. DICLOFENAC [Suspect]
     Active Substance: DICLOFENAC
     Indication: Back pain
     Dosage: UNK, (FOR SEVERAL YEARS)
     Route: 065

REACTIONS (5)
  - Intestinal diaphragm disease [Recovered/Resolved]
  - Ileal ulcer [Recovered/Resolved]
  - Blood albumin decreased [Recovered/Resolved]
  - Iron deficiency anaemia [Recovered/Resolved]
  - Haemoglobin decreased [Recovered/Resolved]
